FAERS Safety Report 9404115 (Version 1)
Quarter: 2013Q3

REPORT INFORMATION
  Report Type: Spontaneous
  Country: ES (occurrence: None)
  Receive Date: 20130708
  Receipt Date: 20130708
  Transmission Date: 20140515
  Serious: Yes (Death)
  Sender: FDA-Public Use
  Company Number: 2013036754

PATIENT
  Sex: Female

DRUGS (2)
  1. IVIG (IMMUNE GLOBULIN INTRAVENOUS (HUMAN) 10% LIQUID) [Suspect]
     Indication: JAUNDICE ACHOLURIC
     Dosage: 500 MG/KG  TOTAL
  2. PHENOBARBITAL (PHENOBARBITAL) [Concomitant]

REACTIONS (3)
  - Necrotising colitis [None]
  - Off label use [None]
  - Gastrointestinal necrosis [None]
